FAERS Safety Report 21076729 (Version 4)
Quarter: 2022Q3

REPORT INFORMATION
  Report Type: Report from Study
  Country: GR (occurrence: GR)
  Receive Date: 20220713
  Receipt Date: 20220809
  Transmission Date: 20221027
  Serious: Yes (Death, Hospitalization)
  Sender: FDA-Public Use
  Company Number: GR-KARYOPHARM-2022KPT000785

PATIENT
  Age: 68 Year
  Sex: Female

DRUGS (5)
  1. SELINEXOR [Suspect]
     Active Substance: SELINEXOR
     Indication: Plasma cell myeloma
     Dosage: 80 MG, 2X/WEEK
     Route: 048
     Dates: start: 202101, end: 20220627
  2. LASIX [Concomitant]
     Active Substance: FUROSEMIDE
  3. LOPRESSOR [Concomitant]
     Active Substance: METOPROLOL TARTRATE
  4. ALDACTONE [Concomitant]
     Active Substance: SPIRONOLACTONE
  5. ELTROMBOPAG OLAMINE [Concomitant]
     Active Substance: ELTROMBOPAG OLAMINE

REACTIONS (1)
  - Plasma cell myeloma [Fatal]

NARRATIVE: CASE EVENT DATE: 20220628
